FAERS Safety Report 9675169 (Version 1)
Quarter: 2013Q4

REPORT INFORMATION
  Report Type: Spontaneous
  Country: US (occurrence: US)
  Receive Date: 20131107
  Receipt Date: 20131107
  Transmission Date: 20140711
  Serious: No
  Sender: FDA-Public Use
  Company Number: US-PFIZER INC-2013314445

PATIENT
  Sex: Female

DRUGS (1)
  1. ADVIL [Suspect]
     Indication: NECK PAIN
     Dosage: UNK

REACTIONS (2)
  - Cardiac discomfort [Unknown]
  - Chest pain [Unknown]
